FAERS Safety Report 23047359 (Version 1)
Quarter: 2023Q4

REPORT INFORMATION
  Report Type: Spontaneous
  Country: IN (occurrence: IN)
  Receive Date: 20231010
  Receipt Date: 20231010
  Transmission Date: 20240109
  Serious: Yes (Other)
  Sender: FDA-Public Use
  Company Number: IN-PIRAMAL CRITICAL CARE LIMITED-2023-PPL-000430

PATIENT

DRUGS (11)
  1. SEVOFLURANE [Suspect]
     Active Substance: SEVOFLURANE
     Indication: Maintenance of anaesthesia
     Dosage: TOTAL (MAC) OF 0.8-1.2
  2. SEVOFLURANE [Suspect]
     Active Substance: SEVOFLURANE
     Dosage: TAPERED TO A MAC OF 0.5
  3. FENTANYL [Suspect]
     Active Substance: FENTANYL
     Indication: Induction of anaesthesia
     Dosage: 2 MICROGRAM/KILOGRAM
  4. FENTANYL [Suspect]
     Active Substance: FENTANYL
     Dosage: 1 ?G/KG/H
  5. THIOPENTAL [Suspect]
     Active Substance: THIOPENTAL
     Indication: Induction of anaesthesia
     Dosage: 4-6 MG/ KG
  6. THIOPENTAL [Suspect]
     Active Substance: THIOPENTAL
     Indication: Endotracheal intubation
     Dosage: 1-2 MG/KG
  7. ROCURONIUM [Suspect]
     Active Substance: ROCURONIUM BROMIDE
     Indication: Endotracheal intubation
     Dosage: 1 MILLIGRAM/KILOGRAM
  8. ROCURONIUM [Suspect]
     Active Substance: ROCURONIUM BROMIDE
     Dosage: 5 ?G/KG/MIN
  9. DEXAMETHASONE [Suspect]
     Active Substance: DEXAMETHASONE
     Indication: Product used for unknown indication
     Dosage: UNK
  10. MANNITOL [Suspect]
     Active Substance: MANNITOL
     Indication: Product used for unknown indication
     Dosage: 1 GRAM PER KILOGRAM
  11. NITROUS OXIDE [Suspect]
     Active Substance: NITROUS OXIDE
     Indication: Maintenance of anaesthesia
     Dosage: UNK

REACTIONS (1)
  - Pneumothorax [Unknown]
